FAERS Safety Report 5168817-6 (Version None)
Quarter: 2006Q4

REPORT INFORMATION
  Report Type: 
  Country: None (occurrence: None)
  Receive Date: 20061205
  Receipt Date: 20061205
  Transmission Date: 20070319
  Serious: Yes (Death)
  Sender: FDA-Public Use
  Company Number: None

PATIENT
  Age: 34 Year
  Sex: Female
  Weight: 86.1834 kg

DRUGS (1)
  1. METHADONE HCL [Suspect]
     Indication: PAIN
     Dates: start: 20060203, end: 20060205

REACTIONS (1)
  - DEATH [None]
